FAERS Safety Report 13059427 (Version 4)
Quarter: 2017Q2

REPORT INFORMATION
  Report Type: Report from Study
  Country: FR (occurrence: FR)
  Receive Date: 20161223
  Receipt Date: 20170626
  Transmission Date: 20170830
  Serious: Yes (Hospitalization, Other)
  Sender: FDA-Public Use
  Company Number: FR-JNJFOC-20160112249

PATIENT
  Age: 62 Year
  Sex: Female

DRUGS (18)
  1. BISOPROLOL [Concomitant]
     Active Substance: BISOPROLOL
     Indication: HYPERTENSION
     Dosage: 400 (UNIT UNSPECIFIED)
     Route: 048
  2. ESOMEPRAZOLE [Concomitant]
     Active Substance: ESOMEPRAZOLE
     Indication: PROPHYLAXIS AGAINST GASTROINTESTINAL ULCER
     Route: 065
  3. SIMPONI [Suspect]
     Active Substance: GOLIMUMAB
     Indication: ANKYLOSING SPONDYLITIS
     Route: 058
     Dates: start: 20170411
  4. HYDROCHLOROTHIAZIDE. [Concomitant]
     Active Substance: HYDROCHLOROTHIAZIDE
     Indication: BLOOD PRESSURE INCREASED
     Dosage: 400 (UNIT UNSPECIFIED)
     Route: 048
  5. BISOPROLOL [Concomitant]
     Active Substance: BISOPROLOL
     Indication: BLOOD PRESSURE INCREASED
     Dosage: 400 (UNIT UNSPECIFIED)
     Route: 048
  6. SIMPONI [Suspect]
     Active Substance: GOLIMUMAB
     Indication: ANKYLOSING SPONDYLITIS
     Route: 058
     Dates: start: 20170511
  7. IBUPROFENE [Concomitant]
     Active Substance: IBUPROFEN
     Dosage: 400 (UNIT UNSPECIFIED)
     Route: 065
  8. HYDROCHLOROTHIAZIDE. [Concomitant]
     Active Substance: HYDROCHLOROTHIAZIDE
     Indication: HYPERTENSION
     Dosage: 400 (UNIT UNSPECIFIED)
     Route: 048
  9. MOPRAL [Concomitant]
     Active Substance: OMEPRAZOLE SODIUM
     Indication: PROPHYLAXIS AGAINST GASTROINTESTINAL ULCER
     Dosage: 400 (UNIT UNSPECIFIED)
     Route: 048
  10. SIMPONI [Suspect]
     Active Substance: GOLIMUMAB
     Indication: ANKYLOSING SPONDYLITIS
     Route: 058
     Dates: start: 20160607
  11. SIMPONI [Suspect]
     Active Substance: GOLIMUMAB
     Indication: ANKYLOSING SPONDYLITIS
     Route: 058
     Dates: start: 20161114
  12. FENOFIBRATE. [Concomitant]
     Active Substance: FENOFIBRATE
     Indication: HYPERCHOLESTEROLAEMIA
     Dosage: 400 (UNIT UNSPECIFIED)
     Route: 048
  13. SIMPONI [Suspect]
     Active Substance: GOLIMUMAB
     Indication: ANKYLOSING SPONDYLITIS
     Route: 058
     Dates: start: 20151211
  14. SIMPONI [Suspect]
     Active Substance: GOLIMUMAB
     Indication: ANKYLOSING SPONDYLITIS
     Route: 058
     Dates: start: 20160711
  15. POTASSIUM [Concomitant]
     Active Substance: POTASSIUM
     Indication: BLOOD PRESSURE INCREASED
     Dosage: 400 (UNIT UNSPECIFIED)
     Route: 048
  16. SIMPONI [Suspect]
     Active Substance: GOLIMUMAB
     Indication: ANKYLOSING SPONDYLITIS
     Route: 058
     Dates: start: 20161011
  17. ANETHOLE TRITHIONE [Concomitant]
     Dosage: 400 (UNIT UNSPECIFIED)
     Route: 048
  18. UVEDOSE [Concomitant]
     Active Substance: CHOLECALCIFEROL
     Indication: OSTEOPOROSIS PROPHYLAXIS
     Route: 065

REACTIONS (45)
  - Back pain [Unknown]
  - Herpes zoster [Recovered/Resolved with Sequelae]
  - Biliary tract disorder [Unknown]
  - Colitis [Unknown]
  - Insomnia [Unknown]
  - Erythema [Unknown]
  - Skin disorder [Unknown]
  - Headache [Unknown]
  - Bronchitis [Unknown]
  - Asthenia [Unknown]
  - Blister [Unknown]
  - Visual impairment [Unknown]
  - Lacrimal duct neoplasm [Recovered/Resolved]
  - Oral infection [Unknown]
  - Liver function test abnormal [Unknown]
  - Pyrexia [Unknown]
  - Gastritis [Unknown]
  - Depression [Unknown]
  - Chest discomfort [Unknown]
  - Inflammation [Unknown]
  - Dizziness [Unknown]
  - Heart rate irregular [Unknown]
  - Subcutaneous abscess [Recovered/Resolved]
  - Gait disturbance [Unknown]
  - Movement disorder [Unknown]
  - General physical condition abnormal [Unknown]
  - Hypersensitivity [Unknown]
  - Bladder disorder [Unknown]
  - Asthma [Unknown]
  - Ischaemic stroke [Recovered/Resolved]
  - Spondylitis [Unknown]
  - Alopecia [Unknown]
  - Dysgeusia [Unknown]
  - Paraesthesia [Unknown]
  - Urinary tract infection [Recovered/Resolved]
  - Sinusitis [Unknown]
  - Bacterial infection [Unknown]
  - Oral herpes [Unknown]
  - Liver disorder [Unknown]
  - Hypertension [Unknown]
  - Spinal column stenosis [Unknown]
  - Respiratory disorder [Unknown]
  - Nausea [Unknown]
  - Mouth ulceration [Unknown]
  - Balance disorder [Unknown]

NARRATIVE: CASE EVENT DATE: 20160108
